FAERS Safety Report 5779739-1 (Version None)
Quarter: 2008Q2

REPORT INFORMATION
  Report Type: 
  Country: None (occurrence: None)
  Receive Date: 20080617
  Receipt Date: 20080602
  Transmission Date: 20081010
  Serious: Yes (Hospitalization)
  Sender: FDA-Public Use
  Company Number: 2008S1009605

PATIENT
  Age: 86 Year
  Sex: Male

DRUGS (10)
  1. BENDROFLUMETHIAZIDE (BENDROFLUMETHIAZIDE) [Suspect]
     Indication: DRUG USE FOR UNKNOWN INDICATION
  2. ACETYLSALICYLIC ACID SRT [Suspect]
     Indication: DRUG USE FOR UNKNOWN INDICATION
  3. ATENOLOL [Suspect]
     Indication: DRUG USE FOR UNKNOWN INDICATION
  4. CHLORPHENIRAMINE MALEATE [Suspect]
     Indication: DRUG USE FOR UNKNOWN INDICATION
  5. DIGOXIN [Suspect]
     Indication: DRUG USE FOR UNKNOWN INDICATION
  6. PREDNISOLONE [Suspect]
     Indication: DRUG USE FOR UNKNOWN INDICATION
  7. URSODIOL [Suspect]
     Indication: DRUG USE FOR UNKNOWN INDICATION
  8. AQUEOUS /00498501/ (SOFT SOAP) [Suspect]
     Indication: DRUG USE FOR UNKNOWN INDICATION
  9. CETOSTEARYL ALCOHOL (CETOSTEARYL ALCOHOL) [Suspect]
     Indication: DRUG USE FOR UNKNOWN INDICATION
  10. LACTULOSE [Concomitant]

REACTIONS (1)
  - JAUNDICE [None]
